FAERS Safety Report 20143477 (Version 1)
Quarter: 2021Q4

REPORT INFORMATION
  Report Type: Spontaneous
  Country: NL (occurrence: NL)
  Receive Date: 20211203
  Receipt Date: 20211203
  Transmission Date: 20220304
  Serious: Yes (Other)
  Sender: FDA-Public Use
  Company Number: NL-SUN PHARMACEUTICAL INDUSTRIES LTD-2021R1-319395

PATIENT
  Age: 35 Year
  Sex: Male
  Weight: 124 kg

DRUGS (1)
  1. TOPIRAMATE [Suspect]
     Active Substance: TOPIRAMATE
     Indication: Seizure
     Dosage: 2500 MILLIGRAM, BID

REACTIONS (2)
  - Toxicity to various agents [Recovering/Resolving]
  - Product prescribing issue [Unknown]
